FAERS Safety Report 20710179 (Version 2)
Quarter: 2022Q2

REPORT INFORMATION
  Report Type: Spontaneous
  Country: US (occurrence: None)
  Receive Date: 20220414
  Receipt Date: 20220602
  Transmission Date: 20220721
  Serious: Yes (Other)
  Sender: FDA-Public Use
  Company Number: 2022A145152

PATIENT
  Age: 26346 Day
  Sex: Female
  Weight: 88 kg

DRUGS (3)
  1. EVUSHELD [Suspect]
     Active Substance: CILGAVIMAB\TIXAGEVIMAB
     Indication: Renal transplant
     Dosage: 300.0MG ONCE/SINGLE ADMINISTRATION
     Route: 030
     Dates: start: 20220405
  2. LEVEMIR [Concomitant]
     Active Substance: INSULIN DETEMIR
     Dosage: 40 UNITS AM AND 12 UNITS AT NIGHT
  3. NOVOLOG [Concomitant]
     Active Substance: INSULIN ASPART
     Dosage: 1UNITS PER 25 POINTS ABOVE 150

REACTIONS (2)
  - Blood glucose fluctuation [Unknown]
  - Blood glucose decreased [Unknown]

NARRATIVE: CASE EVENT DATE: 20220406
